FAERS Safety Report 13457099 (Version 1)
Quarter: 2017Q2

REPORT INFORMATION
  Report Type: Report from Study
  Country: US (occurrence: US)
  Receive Date: 20170419
  Receipt Date: 20170419
  Transmission Date: 20170830
  Serious: Yes (Other)
  Sender: FDA-Public Use
  Company Number: PHHY2016US176292

PATIENT
  Age: 62 Year
  Sex: Male

DRUGS (1)
  1. GILENYA [Suspect]
     Active Substance: FINGOLIMOD HYDROCHLORIDE
     Indication: MULTIPLE SCLEROSIS
     Dosage: UNK UNK, QD
     Route: 048

REACTIONS (8)
  - Alanine aminotransferase increased [Unknown]
  - White blood cell count decreased [Unknown]
  - Melanocytic naevus [Unknown]
  - Dry eye [Unknown]
  - Retinal drusen [Unknown]
  - Actinic keratosis [Unknown]
  - Cataract nuclear [Unknown]
  - Somnolence [Recovered/Resolved]

NARRATIVE: CASE EVENT DATE: 20160922
